FAERS Safety Report 5003506-X (Version None)
Quarter: 2006Q2

REPORT INFORMATION
  Report Type: 
  Country: None (occurrence: None)
  Receive Date: 20060512
  Receipt Date: 20060502
  Transmission Date: 20061013
  Serious: Yes (Hospitalization)
  Sender: FDA-Public Use
  Company Number: 2006BI006407

PATIENT
  Age: 45 Year
  Sex: Male
  Weight: 74.8435 kg

DRUGS (10)
  1. AVONEX [Suspect]
     Indication: MULTIPLE SCLEROSIS
     Dosage: IM
     Route: 030
  2. XALATAN [Concomitant]
  3. COSOPT [Concomitant]
  4. INDOMETHACIN [Concomitant]
  5. LOTREL [Concomitant]
  6. PRED FORTE [Concomitant]
  7. ZOCOR [Concomitant]
  8. METOPROLOL TARTRATE [Concomitant]
  9. PLAVIX [Concomitant]
  10. TOPROL-XL [Concomitant]

REACTIONS (4)
  - DEPRESSION [None]
  - MEMORY IMPAIRMENT [None]
  - MYOCARDIAL INFARCTION [None]
  - STRESS [None]
